FAERS Safety Report 4615525-3 (Version None)
Quarter: 2005Q2

REPORT INFORMATION
  Report Type: 
  Country: None (occurrence: None)
  Receive Date: 20050311
  Receipt Date: 20041221
  Transmission Date: 20051028
  Serious: No
  Sender: FDA-Public Use
  Company Number: 2004-BP-14170BP

PATIENT
  Age: 49 Year
  Sex: Female

DRUGS (2)
  1. SPIRIVA [Suspect]
     Indication: CHRONIC OBSTRUCTIVE PULMONARY DISEASE
     Dosage: 18 MCG (18 MCG, 18 IN 1 D), IH
     Route: 055
     Dates: start: 20041101
  2. ADVAIR DISKUS 100/50 [Concomitant]

REACTIONS (1)
  - ALOPECIA [None]
